FAERS Safety Report 23738286 (Version 1)
Quarter: 2024Q2

REPORT INFORMATION
  Report Type: Spontaneous
  Country: CA (occurrence: CA)
  Receive Date: 20240412
  Receipt Date: 20240412
  Transmission Date: 20240716
  Serious: Yes (Hospitalization)
  Sender: FDA-Public Use
  Company Number: CA-PFIZER INC-202400084340

PATIENT
  Age: 37 Year
  Sex: Female

DRUGS (3)
  1. LINEZOLID [Interacting]
     Active Substance: LINEZOLID
     Indication: Pneumonia staphylococcal
     Dosage: UNK
  2. LINEZOLID [Interacting]
     Active Substance: LINEZOLID
     Indication: Lung infiltration
  3. WELLBUTRIN XL [Interacting]
     Active Substance: BUPROPION HYDROCHLORIDE
     Indication: Depression
     Dosage: UNK

REACTIONS (4)
  - Altered state of consciousness [Unknown]
  - Clonus [Unknown]
  - Drug interaction [Unknown]
  - Tachycardia [Unknown]
